FAERS Safety Report 6950916-7 (Version None)
Quarter: 2010Q3

REPORT INFORMATION
  Report Type: 
  Country: None (occurrence: None)
  Receive Date: 20100828
  Receipt Date: 20100303
  Transmission Date: 20110219
  Serious: No
  Sender: FDA-Public Use
  Company Number: US-ABBOTT-10P-163-0630189-00

PATIENT
  Sex: Female
  Weight: 95.34 kg

DRUGS (3)
  1. NIASPAN [Suspect]
     Indication: BLOOD CHOLESTEROL INCREASED
     Dosage: AT BEDTIME
     Dates: start: 20080401
  2. NIASPAN [Suspect]
     Dosage: AT BEDTIME
     Dates: start: 20080101
  3. NIASPAN [Suspect]
     Dates: start: 20080416

REACTIONS (2)
  - FLUSHING [None]
  - NAUSEA [None]
